FAERS Safety Report 5008719-9 (Version None)
Quarter: 2006Q2

REPORT INFORMATION
  Report Type: 
  Country: None (occurrence: None)
  Receive Date: 20060519
  Receipt Date: 20060510
  Transmission Date: 20061013
  Serious: Yes (Hospitalization)
  Sender: FDA-Public Use
  Company Number: 200610988BWH

PATIENT
  Age: 59 Year
  Sex: Male
  Weight: 101.6057 kg

DRUGS (36)
  1. SORAFENIB [Suspect]
     Indication: MALIGNANT MELANOMA
     Dosage: SEE IMAGE
     Route: 048
     Dates: start: 20060209, end: 20060213
  2. SORAFENIB [Suspect]
     Indication: MALIGNANT MELANOMA
     Dosage: SEE IMAGE
     Route: 048
     Dates: start: 20060413, end: 20060429
  3. CARBOPLATIN [Suspect]
     Dosage: ONCE, INTRAVENOUS
     Route: 042
     Dates: start: 20060208
  4. CARBOPLATIN [Suspect]
     Dosage: ONCE, INTRAVENOUS
     Route: 042
     Dates: start: 20060412
  5. TAXOL [Suspect]
     Dosage: 511 MG, TOTAL DAILY, ORAL
     Route: 048
     Dates: start: 20060208
  6. NOVOLOG [Concomitant]
  7. HUMULIN N [Concomitant]
  8. METFORMIN [Concomitant]
  9. GLYBURIDE [Concomitant]
  10. METHADONE HCL [Concomitant]
  11. GABAPENTIN [Concomitant]
  12. AMITRIPTYLINE HCL [Concomitant]
  13. TRIXAICIN CREAM [Concomitant]
  14. CARDIZEM [Concomitant]
  15. FUROSEMIDE [Concomitant]
  16. POTASSIUM [Concomitant]
  17. PYRIDOXINE HCL [Concomitant]
  18. PLAVIX [Concomitant]
  19. PENTOXIFYLLINE [Concomitant]
  20. ASPIRIN [Concomitant]
  21. LEVOTHYROXINE SODIUM [Concomitant]
  22. COZAAR [Concomitant]
  23. LEXAPRO [Concomitant]
  24. CLONAZEPAM [Concomitant]
  25. TERAZOSIN HCL [Concomitant]
  26. NASONEX [Concomitant]
  27. SIMVASTATIN [Concomitant]
  28. DEXAMETHASONE TAB [Concomitant]
  29. ZOFRAN [Concomitant]
  30. PEPCID AC [Concomitant]
  31. NOVOLIN N [Concomitant]
  32. IMODIUM [Concomitant]
  33. NYSTATIN [Concomitant]
  34. CEPHALEXIN [Concomitant]
  35. FLUCONAZOLE [Concomitant]
  36. NEUPOGEN [Concomitant]

REACTIONS (16)
  - ANOREXIA [None]
  - BLOOD CREATININE INCREASED [None]
  - CANDIDIASIS [None]
  - CHILLS [None]
  - DEHYDRATION [None]
  - DIARRHOEA [None]
  - HAEMATOCRIT DECREASED [None]
  - HAEMOGLOBIN DECREASED [None]
  - NAUSEA [None]
  - NEUROPATHY [None]
  - NEUTROPENIA [None]
  - ORTHOSTATIC HYPOTENSION [None]
  - PAIN [None]
  - PLATELET COUNT DECREASED [None]
  - VOMITING [None]
  - WHITE BLOOD CELL COUNT DECREASED [None]
